FAERS Safety Report 6372119-X (Version None)
Quarter: 2009Q3

REPORT INFORMATION
  Report Type: 
  Country: None (occurrence: None)
  Receive Date: 20090917
  Receipt Date: 20090910
  Transmission Date: 20100115
  Serious: No
  Sender: FDA-Public Use
  Company Number: 2009JP003944

PATIENT
  Age: 68 Year
  Sex: Male
  Weight: 80 kg

DRUGS (2)
  1. VESICARE [Suspect]
     Indication: HYPERTONIC BLADDER
     Dosage: 5MG, UID/QD, ORAL
     Route: 048
     Dates: start: 20090108, end: 20090625
  2. TAMSULOSIN HCL [Suspect]
     Indication: BENIGN PROSTATIC HYPERPLASIA
     Dosage: 0.2 MG, ORAL
     Route: 048
     Dates: start: 20090401

REACTIONS (4)
  - COGNITIVE DISORDER [None]
  - DEMENTIA [None]
  - DISORIENTATION [None]
  - MEMORY IMPAIRMENT [None]
